FAERS Safety Report 6972206-9 (Version None)
Quarter: 2010Q3

REPORT INFORMATION
  Report Type: 
  Country: None (occurrence: None)
  Receive Date: 20100909
  Receipt Date: 20100901
  Transmission Date: 20110219
  Serious: No
  Sender: FDA-Public Use
  Company Number: US-BIOGENIDEC-2010BI030504

PATIENT
  Age: 56 Year

DRUGS (2)
  1. AVONEX [Suspect]
     Indication: MULTIPLE SCLEROSIS
     Route: 030
     Dates: start: 20000901
  2. AVONEX [Suspect]
     Route: 030

REACTIONS (3)
  - ANXIETY [None]
  - BONE DENSITY DECREASED [None]
  - VISUAL IMPAIRMENT [None]
